FAERS Safety Report 25071800 (Version 3)
Quarter: 2025Q3

REPORT INFORMATION
  Report Type: Spontaneous
  Country: JP (occurrence: JP)
  Receive Date: 20250313
  Receipt Date: 20250929
  Transmission Date: 20251020
  Serious: Yes (Other)
  Sender: SANOFI AVENTIS
  Company Number: JP-SA-2025SA069031

PATIENT
  Age: 8 Decade
  Sex: Female

DRUGS (1)
  1. KEVZARA [Suspect]
     Active Substance: SARILUMAB
     Indication: Rheumatic disorder
     Dosage: 200 MG, QOW
     Route: 058

REACTIONS (3)
  - Blindness unilateral [Not Recovered/Not Resolved]
  - Abscess [Unknown]
  - Purulence [Unknown]
